FAERS Safety Report 19906005 (Version 1)
Quarter: 2021Q3

REPORT INFORMATION
  Report Type: Spontaneous
  Country: US (occurrence: US)
  Receive Date: 20210930
  Receipt Date: 20210930
  Transmission Date: 20211014
  Serious: Yes (Hospitalization, Other)
  Sender: FDA-Public Use
  Company Number: None

PATIENT
  Age: 37 Year
  Sex: Female
  Weight: 63.5 kg

DRUGS (4)
  1. LEXAPRO [Suspect]
     Active Substance: ESCITALOPRAM OXALATE
  2. ATIVAN [Suspect]
     Active Substance: LORAZEPAM
  3. SEROQUEL [Suspect]
     Active Substance: QUETIAPINE FUMARATE
  4. KLONOPIN [Suspect]
     Active Substance: CLONAZEPAM

REACTIONS (1)
  - Premature labour [None]

NARRATIVE: CASE EVENT DATE: 20190205
